FAERS Safety Report 10088016 (Version 2)
Quarter: 2014Q3

REPORT INFORMATION
  Report Type: Spontaneous
  Country: CH (occurrence: CH)
  Receive Date: 20140420
  Receipt Date: 20140821
  Transmission Date: 20150326
  Serious: Yes (Death, Hospitalization)
  Sender: FDA-Public Use
  Company Number: PHHY2014CH047698

PATIENT
  Age: 65 Year
  Sex: Male

DRUGS (10)
  1. METHOTREXATE [Suspect]
     Active Substance: METHOTREXATE
     Indication: IMMUNOSUPPRESSANT DRUG THERAPY
  2. PREDNISONE. [Suspect]
     Active Substance: PREDNISONE
     Indication: IMMUNOSUPPRESSANT DRUG THERAPY
     Dosage: 2 MG/KG, DAILY
  3. METHYLPREDNISOLONE [Suspect]
     Active Substance: METHYLPREDNISOLONE
     Indication: IMMUNOSUPPRESSANT DRUG THERAPY
     Dosage: 80 MG, DAILY
  4. METHOTREXATE [Suspect]
     Active Substance: METHOTREXATE
     Indication: PROPHYLAXIS AGAINST GRAFT VERSUS HOST DISEASE
  5. PREDNISONE. [Suspect]
     Active Substance: PREDNISONE
     Dosage: 2 MG/KG, DAILY
  6. CICLOSPORIN [Suspect]
     Active Substance: CYCLOSPORINE
     Indication: IMMUNOSUPPRESSANT DRUG THERAPY
     Dosage: 300 MG, DAILY
  7. BUDENOFALK [Suspect]
     Active Substance: BUDESONIDE
     Indication: IMMUNOSUPPRESSANT DRUG THERAPY
     Dosage: 3 MG, TID
  8. PROGRAF [Suspect]
     Active Substance: TACROLIMUS\TACROLIMUS ANHYDROUS
     Indication: IMMUNOSUPPRESSANT DRUG THERAPY
     Dosage: 3 MG, BID
  9. PREDNISONE. [Suspect]
     Active Substance: PREDNISONE
     Dosage: 0.4 MG/KG, DAILY
  10. TACROLIMUS. [Suspect]
     Active Substance: TACROLIMUS
     Indication: IMMUNOSUPPRESSANT DRUG THERAPY
     Dosage: 3 MG, TID

REACTIONS (16)
  - Confusional state [Fatal]
  - Haemolytic uraemic syndrome [Fatal]
  - Renal failure [Unknown]
  - Haemolysis [Fatal]
  - General physical health deterioration [Unknown]
  - Graft versus host disease in gastrointestinal tract [Unknown]
  - Hypertension [Unknown]
  - Abdominal tenderness [Unknown]
  - Cytomegalovirus infection [Unknown]
  - Abdominal pain [Unknown]
  - Acute graft versus host disease [Unknown]
  - Thrombocytopenia [Fatal]
  - Escherichia test positive [Unknown]
  - Diarrhoea [Unknown]
  - Sepsis [Unknown]
  - Rash generalised [Unknown]
